FAERS Safety Report 9971773 (Version 1)
Quarter: 2014Q1

REPORT INFORMATION
  Report Type: Spontaneous
  Country: US (occurrence: None)
  Receive Date: 20140127
  Receipt Date: 20140127
  Transmission Date: 20141002
  Serious: Yes (Disabling)
  Sender: FDA-Public Use
  Company Number: 1228987

PATIENT
  Age: 61 Year
  Sex: 0
  Weight: 35.02 kg

DRUGS (1)
  1. T-PA [Suspect]
     Indication: CEREBROVASCULAR ACCIDENT
     Dosage: (68 MG, 1 IN 1 TOTAL), INTRAVENOUS (NOT OTHERWISE SPECIFIED)
     Route: 042
     Dates: start: 20130522, end: 20130522

REACTIONS (1)
  - Haemorrhagic transformation stroke [None]
